FAERS Safety Report 5169931-1 (Version None)
Quarter: 2006Q4

REPORT INFORMATION
  Report Type: 
  Country: None (occurrence: None)
  Receive Date: 20061212
  Receipt Date: 20061201
  Transmission Date: 20070319
  Serious: Yes (Other)
  Sender: FDA-Public Use
  Company Number: CH-ROCHE-473684

PATIENT
  Age: 31 Year
  Sex: Female

DRUGS (2)
  1. ROACCUTAN GEL [Suspect]
     Indication: ACNE
     Route: 049
     Dates: end: 20061114
  2. ERYTHROMYCIN [Concomitant]
     Route: 061
     Dates: end: 20061114

REACTIONS (3)
  - DRUG EXPOSURE DURING PREGNANCY [None]
  - NO ADVERSE EFFECT [None]
  - PREGNANCY [None]
